FAERS Safety Report 8439974-0 (Version None)
Quarter: 2012Q2

REPORT INFORMATION
  Report Type: 
  Country: None (occurrence: None)
  Receive Date: 20120608
  Receipt Date: 20120601
  Transmission Date: 20120825
  Serious: Yes (Hospitalization, Other)
  Sender: FDA-Public Use
  Company Number: AUR-APL-2012-02516

PATIENT
  Sex: Female
  Weight: 67 kg

DRUGS (4)
  1. RAMIPRIL PLUS (SALUTEC) [Concomitant]
  2. METOPROLOL TARTRATE [Concomitant]
  3. SIMVASTATIN [Suspect]
     Indication: LIPID METABOLISM DISORDER
     Dosage: (80 MG), ORAL
     Route: 048
     Dates: end: 20111125
  4. TREDAPTIVE (NICOTINIC ACID W/LAROPIPRANT) [Suspect]
     Indication: LIPID METABOLISM DISORDER
     Dosage: 1000MG /20MG, ORAL
     Route: 048
     Dates: start: 20110101, end: 20111125

REACTIONS (2)
  - HEPATIC FAILURE [None]
  - RHABDOMYOLYSIS [None]
